FAERS Safety Report 19897823 (Version 2)
Quarter: 2021Q4

REPORT INFORMATION
  Report Type: Spontaneous
  Country: JP (occurrence: JP)
  Receive Date: 20210930
  Receipt Date: 20211014
  Transmission Date: 20220303
  Serious: Yes (Hospitalization, Other)
  Sender: FDA-Public Use
  Company Number: JP-SA-2021SA318665

PATIENT
  Age: 36 Year
  Sex: Female

DRUGS (2)
  1. DOCETAXEL [Suspect]
     Active Substance: DOCETAXEL
     Indication: Gastric cancer
     Route: 041
  2. TS-1 [Concomitant]
     Active Substance: GIMERACIL\OTERACIL\TEGAFUR
     Indication: Gastric cancer
     Route: 065

REACTIONS (5)
  - Coronavirus pneumonia [Unknown]
  - Oropharyngeal pain [Unknown]
  - Cough [Unknown]
  - Febrile neutropenia [Recovered/Resolved]
  - Taste disorder [Unknown]
